FAERS Safety Report 5361284-9 (Version None)
Quarter: 2007Q2

REPORT INFORMATION
  Report Type: 
  Country: None (occurrence: None)
  Receive Date: 20070530
  Receipt Date: 20070117
  Transmission Date: 20071010
  Serious: No
  Sender: FDA-Public Use
  Company Number: 2006PV025755

PATIENT
  Age: 64 Year
  Sex: Female
  Weight: 136.0791 kg

DRUGS (10)
  1. BYETTA [Suspect]
     Indication: DIABETES MELLITUS NON-INSULIN-DEPENDENT
     Dosage: 5 MCG;BID;SC ; 5 MCG;BID;SC ; 5 MCG;BID;SC ; 10 MCG;BID;SC
     Route: 058
     Dates: start: 20061101, end: 20070101
  2. BYETTA [Suspect]
     Indication: DIABETES MELLITUS NON-INSULIN-DEPENDENT
     Dosage: 5 MCG;BID;SC ; 5 MCG;BID;SC ; 5 MCG;BID;SC ; 10 MCG;BID;SC
     Route: 058
     Dates: start: 20061116
  3. BYETTA [Suspect]
     Indication: DIABETES MELLITUS NON-INSULIN-DEPENDENT
     Dosage: 5 MCG;BID;SC ; 5 MCG;BID;SC ; 5 MCG;BID;SC ; 10 MCG;BID;SC
     Route: 058
     Dates: start: 20061120
  4. BYETTA [Suspect]
     Indication: DIABETES MELLITUS NON-INSULIN-DEPENDENT
     Dosage: 5 MCG;BID;SC ; 5 MCG;BID;SC ; 5 MCG;BID;SC ; 10 MCG;BID;SC
     Route: 058
     Dates: start: 20070101
  5. BYETTA [Suspect]
  6. AMARYL [Concomitant]
  7. LANTUS [Concomitant]
  8. OXYCONTIN [Concomitant]
  9. PRILOSEC [Concomitant]
  10. .. [Concomitant]

REACTIONS (8)
  - BLOOD GLUCOSE DECREASED [None]
  - BLOOD GLUCOSE INCREASED [None]
  - DRY MOUTH [None]
  - NAUSEA [None]
  - ORAL PAIN [None]
  - SOMNOLENCE [None]
  - VOMITING [None]
  - WEIGHT DECREASED [None]
